FAERS Safety Report 15498691 (Version 1)
Quarter: 2018Q4

REPORT INFORMATION
  Report Type: Spontaneous
  Country: US (occurrence: US)
  Receive Date: 20181005
  Receipt Date: 20181005
  Transmission Date: 20190205
  Serious: Yes (Life-Threatening, Disabling, Other)
  Sender: FDA-Public Use
  Company Number: None

PATIENT
  Age: 67 Year
  Weight: 275 kg

DRUGS (8)
  1. CPAP [Concomitant]
     Active Substance: DEVICE
  2. VITAMINS [Concomitant]
     Active Substance: VITAMINS
  3. REPATHA [Suspect]
     Active Substance: EVOLOCUMAB
     Indication: BLOOD CHOLESTEROL INCREASED
     Dosage: ?          QUANTITY:1 INJECTION(S);?
     Route: 058
     Dates: start: 20171030, end: 20180401
  4. LISINOPRIL. [Concomitant]
     Active Substance: LISINOPRIL
  5. ZOLOFT [Concomitant]
     Active Substance: SERTRALINE HYDROCHLORIDE
  6. ASPRIN [Concomitant]
     Active Substance: ASPIRIN
  7. METROPOLOL [Concomitant]
     Active Substance: METOPROLOL
  8. CBD [Concomitant]
     Active Substance: CANNABIDIOL

REACTIONS (4)
  - Diarrhoea [None]
  - Injection site hypoaesthesia [None]
  - Influenza [None]
  - Dizziness [None]

NARRATIVE: CASE EVENT DATE: 20171130
